FAERS Safety Report 9072336 (Version 1)
Quarter: 2013Q1

REPORT INFORMATION
  Report Type: Spontaneous
  Country: US (occurrence: US)
  Receive Date: 20130206
  Receipt Date: 20130206
  Transmission Date: 20140127
  Serious: No
  Sender: FDA-Public Use
  Company Number: US-ALLERGAN-1218029US

PATIENT
  Age: 72 Year
  Sex: Female

DRUGS (17)
  1. RESTASIS? [Suspect]
     Indication: DRY EYE
     Dosage: 2 GTT, BID
     Route: 047
     Dates: start: 20121130, end: 20121224
  2. SYSTANE [Concomitant]
     Indication: DRY EYE
     Dosage: 2 GTT, PRN
     Route: 047
  3. CALCITONIN [Concomitant]
     Indication: PRODUCT USED FOR UNKNOWN INDICATION
     Dosage: UNK
     Route: 045
  4. CARBIDOPA [Concomitant]
     Indication: PARKINSON^S DISEASE
     Dosage: UNK UNK, QD
     Route: 048
  5. CITRICAL                           /00108001/ [Concomitant]
     Indication: SUPPLEMENTATION THERAPY
     Dosage: UNK UNK, QD
     Route: 048
  6. DEXILANT [Concomitant]
     Indication: GASTROOESOPHAGEAL REFLUX DISEASE
     Dosage: UNK, QD
     Route: 048
  7. DILTIAZEM [Concomitant]
     Indication: HYPERTENSION
     Dosage: UNK UNK, QD
     Route: 048
  8. INSULIN [Concomitant]
     Indication: DIABETES MELLITUS
     Dosage: UNK UNK, QD
     Route: 058
  9. OXYCODONE [Concomitant]
     Indication: BACK PAIN
     Dosage: UNK
     Route: 048
  10. PANCREASE                          /00014701/ [Concomitant]
     Indication: PANCREATITIS
     Dosage: UNK UNK, QD
     Route: 048
  11. PRAVASTATIN [Concomitant]
     Indication: BLOOD CHOLESTEROL INCREASED
     Dosage: UNK UNK, QD
     Route: 048
  12. PRESTIQ [Concomitant]
     Indication: DEPRESSION
     Dosage: UNK, QD
     Route: 048
  13. SPIRONOLACTONE [Concomitant]
     Indication: HYPERTENSION
     Dosage: UNK UNK, QD
     Route: 048
  14. VESICARE                           /01735901/ [Concomitant]
     Indication: URINARY INCONTINENCE
     Dosage: UNK UNK, QD
     Route: 048
  15. SPIRIVA [Concomitant]
     Indication: ASTHMA
     Dosage: UNK
     Route: 055
  16. ROPIDAL [Concomitant]
     Indication: PARKINSON^S DISEASE
     Dosage: UNK, QD
     Route: 048
  17. BENICAR [Concomitant]
     Indication: HYPERTENSION
     Dosage: UNK UNK, QD
     Route: 048

REACTIONS (4)
  - Ocular hyperaemia [Recovered/Resolved]
  - Eye irritation [Unknown]
  - Eye pain [Recovered/Resolved]
  - Lacrimation increased [Not Recovered/Not Resolved]
